FAERS Safety Report 20089501 (Version 1)
Quarter: 2021Q4

REPORT INFORMATION
  Report Type: Spontaneous
  Country: US (occurrence: US)
  Receive Date: 20211119
  Receipt Date: 20211119
  Transmission Date: 20220303
  Serious: No
  Sender: FDA-Public Use
  Company Number: US-SA-SAC20211117000786

PATIENT
  Age: 11 Year
  Sex: Female

DRUGS (1)
  1. DUPIXENT [Suspect]
     Active Substance: DUPILUMAB
     Indication: Dermatitis allergic
     Dosage: UNK UNK, QOW
     Route: 058
     Dates: start: 20210924

REACTIONS (2)
  - Injection site reaction [Unknown]
  - Product use issue [Unknown]

NARRATIVE: CASE EVENT DATE: 20211014
